FAERS Safety Report 9322497 (Version 1)
Quarter: 2013Q2

REPORT INFORMATION
  Report Type: Spontaneous
  Country: BR (occurrence: BR)
  Receive Date: 20130531
  Receipt Date: 20130531
  Transmission Date: 20140414
  Serious: Yes (Hospitalization)
  Sender: FDA-Public Use
  Company Number: PHHY2013BR054034

PATIENT
  Age: 34 Year
  Sex: Female

DRUGS (1)
  1. METHYLPREDNISOLONE [Suspect]
     Indication: IDIOPATHIC THROMBOCYTOPENIC PURPURA

REACTIONS (5)
  - Cerebellar ataxia [Unknown]
  - Ataxia [Unknown]
  - Dysarthria [Unknown]
  - Ocular dysmetria [Unknown]
  - Cerebellar atrophy [Unknown]
